FAERS Safety Report 9005553 (Version 2)
Quarter: 2013Q2

REPORT INFORMATION
  Report Type: Spontaneous
  Country: AU (occurrence: AU)
  Receive Date: 20130109
  Receipt Date: 20130509
  Transmission Date: 20140414
  Serious: Yes (Disabling, Other)
  Sender: FDA-Public Use
  Company Number: AU-PFIZER INC-2013002677

PATIENT
  Age: 87 Year
  Sex: Female
  Weight: 70 kg

DRUGS (5)
  1. PRISTIQ [Suspect]
     Indication: MAJOR DEPRESSION
     Dosage: 200 MG, 1X/DAY IN THE MORNING
     Dates: start: 201211
  2. MIRTAZAPINE [Concomitant]
     Indication: DEPRESSION
     Dosage: 1 DF, 1X/DAY, AT NIGHT
     Route: 048
  3. VALIUM [Concomitant]
     Indication: ANXIETY
     Dosage: 5 MG, 2X/DAY,
  4. ATIVAN [Concomitant]
     Indication: ANXIETY
     Dosage: 1 DF, 1X/DAY
  5. TEMAZEPAM [Concomitant]
     Indication: INSOMNIA
     Dosage: 2 MG, 1X/DAY

REACTIONS (5)
  - Anxiety [Not Recovered/Not Resolved]
  - Panic reaction [Recovered/Resolved]
  - Insomnia [Recovered/Resolved]
  - Activities of daily living impaired [Recovered/Resolved]
  - Psychiatric symptom [Recovered/Resolved]
